FAERS Safety Report 8381394-1 (Version None)
Quarter: 2012Q2

REPORT INFORMATION
  Report Type: 
  Country: None (occurrence: None)
  Receive Date: 20120523
  Receipt Date: 20120521
  Transmission Date: 20120825
  Serious: Yes (Other)
  Sender: FDA-Public Use
  Company Number: PHHY2012JP043830

PATIENT
  Age: 51 Year
  Sex: Male

DRUGS (1)
  1. CYCLOSPORINE [Suspect]
     Indication: PSORIASIS
     Route: 048

REACTIONS (2)
  - DERMATITIS EXFOLIATIVE [None]
  - RENAL DISORDER [None]
